FAERS Safety Report 4647417-8 (Version None)
Quarter: 2005Q2

REPORT INFORMATION
  Report Type: 
  Country: None (occurrence: None)
  Receive Date: 20050428
  Receipt Date: 20040330
  Transmission Date: 20051028
  Serious: Yes (Other)
  Sender: FDA-Public Use
  Company Number: BE-JNJFOC-20040306637

PATIENT
  Age: 2 Year
  Sex: Female
  Weight: 12.2 kg

DRUGS (1)
  1. CISAPRIDE [Suspect]
     Route: 049

REACTIONS (1)
  - ELECTROCARDIOGRAM QT CORRECTED INTERVAL PROLONGED [None]
